FAERS Safety Report 7796011-9 (Version None)
Quarter: 2011Q4

REPORT INFORMATION
  Report Type: 
  Country: None (occurrence: None)
  Receive Date: 20111004
  Receipt Date: 20110928
  Transmission Date: 20120403
  Serious: Yes (Death, Other)
  Sender: FDA-Public Use
  Company Number: JP-PFIZER INC-2011209053

PATIENT
  Age: 67 Year
  Sex: Female
  Weight: 39 kg

DRUGS (12)
  1. FAMOTIDINE [Concomitant]
     Indication: GASTROINTESTINAL DISORDER
     Dosage: 10 MG, 1X/DAY
     Route: 048
     Dates: start: 20080628
  2. EPADEL [Concomitant]
     Indication: POOR PERIPHERAL CIRCULATION
     Dosage: 600 MG, 3X/DAY
     Dates: start: 20090423
  3. METHYCOBAL [Concomitant]
     Indication: NEUROPATHY PERIPHERAL
     Dosage: 500 UG, 3X/DAY
     Dates: start: 20070510
  4. NESPO [Concomitant]
     Indication: NEPHROGENIC ANAEMIA
     Dosage: 20 UG, WEEKLY
     Route: 042
     Dates: start: 20110101, end: 20110723
  5. LENDORMIN [Concomitant]
     Indication: INSOMNIA
     Dosage: 0.25 MG, 1X/DAY
     Dates: start: 20070524
  6. CALCIUM CARBONATE [Concomitant]
     Dosage: 500 MG, 3X/DAY
     Dates: start: 20070524
  7. RENAGEL [Concomitant]
     Dosage: 1250 MG, 3X/DAY
     Dates: end: 20110727
  8. LYRICA [Suspect]
     Indication: POST HERPETIC NEURALGIA
     Dosage: 25 MG, 1X/DAY
     Route: 048
     Dates: start: 20110804, end: 20110809
  9. NESPO [Concomitant]
     Dosage: 40 UG, WEEKLY
     Route: 042
     Dates: start: 20110728
  10. LEVOTHYROXINE SODIUM [Concomitant]
     Indication: HYPOTHYROIDISM
     Dosage: 50 UG, 1X/DAY
     Route: 048
     Dates: start: 20070510
  11. SEVELAMER HYDROCHLORIDE [Concomitant]
     Dosage: 800 MG, 2X/DAY
     Dates: start: 20110728
  12. FESIN [Concomitant]
     Indication: IRON DEFICIENCY
     Dosage: 1 DF, MONTHLY
     Route: 042
     Dates: start: 20110101

REACTIONS (4)
  - LOSS OF CONSCIOUSNESS [None]
  - FALL [None]
  - DEATH [None]
  - MYOCARDIAL ISCHAEMIA [None]
